FAERS Safety Report 14409069 (Version 2)
Quarter: 2018Q2

REPORT INFORMATION
  Report Type: Report from Study
  Country: None (occurrence: US)
  Receive Date: 20180119
  Receipt Date: 20180508
  Transmission Date: 20180711
  Serious: Yes (Hospitalization)
  Sender: FDA-Public Use
  Company Number: US-ABBVIE-18K-163-2227016-00

PATIENT
  Age: 36 Year
  Sex: Female

DRUGS (2)
  1. HUMIRA [Suspect]
     Active Substance: ADALIMUMAB
     Indication: CROHN^S DISEASE
     Route: 058
     Dates: start: 20170817, end: 2017
  2. HUMIRA [Suspect]
     Active Substance: ADALIMUMAB
     Route: 058
     Dates: start: 201709

REACTIONS (7)
  - Nephrolithiasis [Not Recovered/Not Resolved]
  - Sinusitis [Recovered/Resolved]
  - Intestinal obstruction [Unknown]
  - Influenza [Unknown]
  - Weight decreased [Unknown]
  - Nausea [Recovered/Resolved]
  - Intestinal dilatation [Unknown]

NARRATIVE: CASE EVENT DATE: 201711
